FAERS Safety Report 5441900-3 (Version None)
Quarter: 2007Q3

REPORT INFORMATION
  Report Type: 
  Country: None (occurrence: None)
  Receive Date: 20070904
  Receipt Date: 20070823
  Transmission Date: 20080115
  Serious: Yes (Other)
  Sender: FDA-Public Use
  Company Number: US-ROCHE-507690

PATIENT
  Age: 26 Year
  Sex: Female
  Weight: 118.4 kg

DRUGS (2)
  1. PEGASYS [Suspect]
     Indication: ILL-DEFINED DISORDER
     Route: 065
     Dates: start: 20061201
  2. COPEGUS [Suspect]
     Indication: ILL-DEFINED DISORDER
     Route: 065

REACTIONS (1)
  - CHOLELITHIASIS [None]
